FAERS Safety Report 6670300-3 (Version None)
Quarter: 2010Q2

REPORT INFORMATION
  Report Type: 
  Country: None (occurrence: None)
  Receive Date: 20100406
  Receipt Date: 20100402
  Transmission Date: 20101027
  Serious: Yes (Death, Hospitalization)
  Sender: FDA-Public Use
  Company Number: US-BRISTOL-MYERS SQUIBB COMPANY-14805725

PATIENT
  Age: 56 Year
  Sex: Female
  Weight: 44 kg

DRUGS (4)
  1. ERBITUX [Suspect]
     Indication: ADENOCARCINOMA OF THE CERVIX
     Dosage: 1ST COURSE ON 02JUL09; 250MG/M2 WEEKLY IV
     Route: 042
     Dates: start: 20090813, end: 20090903
  2. COMPAZINE [Suspect]
     Route: 048
  3. HYDROCODONE BITARTRATE [Suspect]
  4. ZOFRAN [Suspect]
     Dosage: DOSE- Q 8 HRS.
     Route: 048

REACTIONS (6)
  - ABDOMINAL PAIN [None]
  - CONSTIPATION [None]
  - DYSPNOEA [None]
  - MALIGNANT NEOPLASM PROGRESSION [None]
  - THROMBOSIS [None]
  - VOMITING [None]
